FAERS Safety Report 18655722 (Version 1)
Quarter: 2020Q4

REPORT INFORMATION
  Report Type: Spontaneous
  Country: DE (occurrence: DE)
  Receive Date: 20201223
  Receipt Date: 20201223
  Transmission Date: 20210114
  Serious: Yes (Hospitalization)
  Sender: FDA-Public Use
  Company Number: DE-EISAI MEDICAL RESEARCH-EC-2020-085503

PATIENT
  Age: 43 Year
  Sex: Female
  Weight: 89 kg

DRUGS (8)
  1. LEVETIRACETAM. [Suspect]
     Active Substance: LEVETIRACETAM
     Indication: WRONG PATIENT RECEIVED PRODUCT
     Route: 065
     Dates: start: 20201216, end: 20201216
  2. VITAMIN D [Suspect]
     Active Substance: VITAMIN D NOS
     Indication: WRONG PATIENT RECEIVED PRODUCT
     Route: 065
     Dates: start: 20201216, end: 20201216
  3. FYCOMPA [Suspect]
     Active Substance: PERAMPANEL
     Indication: WRONG PATIENT RECEIVED PRODUCT
     Route: 048
     Dates: start: 20201216, end: 20201216
  4. LAMOTRIGINE. [Suspect]
     Active Substance: LAMOTRIGINE
     Indication: WRONG PATIENT RECEIVED PRODUCT
     Route: 065
     Dates: start: 20201216, end: 20201216
  5. LORAZEPAM. [Suspect]
     Active Substance: LORAZEPAM
     Indication: WRONG PATIENT RECEIVED PRODUCT
     Route: 065
     Dates: start: 20201216, end: 20201216
  6. FOLIC ACID. [Suspect]
     Active Substance: FOLIC ACID
     Indication: WRONG PATIENT RECEIVED PRODUCT
     Route: 065
     Dates: start: 20201216, end: 20201216
  7. BACLOFEN. [Suspect]
     Active Substance: BACLOFEN
     Indication: WRONG PATIENT RECEIVED PRODUCT
     Route: 065
     Dates: start: 20201216, end: 20201216
  8. LEVOTHYROXINE. [Suspect]
     Active Substance: LEVOTHYROXINE
     Indication: WRONG PATIENT RECEIVED PRODUCT
     Route: 065
     Dates: start: 20201216, end: 20201216

REACTIONS (3)
  - Hypotension [Unknown]
  - Wrong patient received product [Unknown]
  - Fatigue [Unknown]

NARRATIVE: CASE EVENT DATE: 20201216
